FAERS Safety Report 25805745 (Version 1)
Quarter: 2025Q3

REPORT INFORMATION
  Report Type: Spontaneous
  Country: US (occurrence: US)
  Receive Date: 20250916
  Receipt Date: 20250916
  Transmission Date: 20251020
  Serious: No
  Sender: HETERO
  Company Number: US-HETERO-HET2025US05272

PATIENT
  Sex: Male
  Weight: 75 kg

DRUGS (1)
  1. LEVOFLOXACIN [Suspect]
     Active Substance: LEVOFLOXACIN
     Indication: Pelvic infection
     Route: 048
     Dates: start: 20250821, end: 20250823

REACTIONS (2)
  - Rash [Recovered/Resolved]
  - Generalised oedema [Recovered/Resolved]
